FAERS Safety Report 14552494 (Version 1)
Quarter: 2018Q1

REPORT INFORMATION
  Report Type: Spontaneous
  Country: FR (occurrence: FR)
  Receive Date: 20180220
  Receipt Date: 20180220
  Transmission Date: 20180509
  Serious: Yes (Death)
  Sender: FDA-Public Use
  Company Number: FR-B. BRAUN MEDICAL INC.-2042290

PATIENT
  Age: 43 Year
  Sex: Male

DRUGS (3)
  1. SELENIUM AGUETTANT (100?G) [Concomitant]
     Route: 042
  2. DEXTROSE INJECTIONS USP 0264-7510-00 0264-7510-20 [Suspect]
     Active Substance: DEXTROSE
     Route: 042
  3. ZINC AGUETTANT (10MG) [Concomitant]

REACTIONS (2)
  - Injection site erythema [Fatal]
  - Injection site induration [Fatal]

NARRATIVE: CASE EVENT DATE: 20130423
